FAERS Safety Report 10298924 (Version 2)
Quarter: 2014Q3

REPORT INFORMATION
  Report Type: Spontaneous
  Country: US (occurrence: US)
  Receive Date: 20140711
  Receipt Date: 20140711
  Transmission Date: 20150326
  Serious: No
  Sender: FDA-Public Use
  Company Number: US-GILEAD-2013-0079297

PATIENT
  Sex: Male

DRUGS (17)
  1. LETAIRIS [Suspect]
     Active Substance: AMBRISENTAN
     Indication: PULMONARY ARTERIAL HYPERTENSION
     Dosage: 10 MG, QD
     Dates: start: 20130325
  2. TYVASO [Concomitant]
     Active Substance: TREPROSTINIL
  3. ASPIRIN. [Concomitant]
     Active Substance: ASPIRIN
  4. WARFARIN SODIUM. [Concomitant]
     Active Substance: WARFARIN SODIUM
  5. LEVOCETIRIZINE [Concomitant]
     Active Substance: LEVOCETIRIZINE
  6. DIGOXIN. [Concomitant]
     Active Substance: DIGOXIN
  7. PREDNISONE. [Concomitant]
     Active Substance: PREDNISONE
  8. TORSEMIDE. [Concomitant]
     Active Substance: TORSEMIDE
  9. MAGNESIUM [Concomitant]
     Active Substance: MAGNESIUM
  10. IRON [Concomitant]
     Active Substance: IRON
  11. METOPROLOL [Concomitant]
     Active Substance: METOPROLOL
  12. OXYGEN. [Concomitant]
     Active Substance: OXYGEN
  13. METOLAZONE. [Concomitant]
     Active Substance: METOLAZONE
  14. LEVOCETIRIZINE [Concomitant]
     Active Substance: LEVOCETIRIZINE
  15. KLOR-CON [Concomitant]
     Active Substance: POTASSIUM CHLORIDE
  16. EPLERENONE. [Concomitant]
     Active Substance: EPLERENONE
  17. DUONEB [Concomitant]
     Active Substance: ALBUTEROL SULFATE\IPRATROPIUM BROMIDE

REACTIONS (2)
  - Epigastric discomfort [Unknown]
  - Diarrhoea [Unknown]
